APPROVED DRUG PRODUCT: FLUOXETINE HYDROCHLORIDE
Active Ingredient: FLUOXETINE HYDROCHLORIDE
Strength: EQ 20MG BASE/5ML
Dosage Form/Route: SOLUTION;ORAL
Application: A079209 | Product #001 | TE Code: AA
Applicant: AUROBINDO PHARMA LTD
Approved: Mar 20, 2009 | RLD: No | RS: No | Type: RX